FAERS Safety Report 10246942 (Version 1)
Quarter: 2014Q2

REPORT INFORMATION
  Report Type: Spontaneous
  Country: NO (occurrence: None)
  Receive Date: 20140617
  Receipt Date: 20140617
  Transmission Date: 20141212
  Serious: Yes (Other)
  Sender: FDA-Public Use
  Company Number: FK201402294

PATIENT
  Age: 15 Year
  Sex: Female

DRUGS (11)
  1. CYTARABINE [Suspect]
     Indication: NON-HODGKIN^S LYMPHOMA
     Dosage: 200 MG/M2, INTRAVENOUS (NOT OTHERWISE SPECIFIED)?
     Route: 042
  2. METHOTREXATE [Suspect]
     Indication: PRECURSOR B-LYMPHOBLASTIC LYMPHOMA
     Dosage: 1500 MG/M2, INTRAVENOUS (NOT OTHERWISE SPECIFIED)?
     Route: 042
  3. PREDNISONE [Suspect]
     Indication: NON-HODGKIN^S LYMPHOMA
     Dosage: 40 MG/M2, ORAL
     Route: 048
  4. L-ASPARAGINASE [Suspect]
     Indication: NON-HODGKIN^S LYMPHOMA
     Dosage: 10000 IU, INTRAVENOUS (NOT OTHERWISE SPECIFIED)?
     Route: 042
  5. CYCLOPHOSPHAMIDE [Suspect]
     Indication: NON-HODGKIN^S LYMPHOMA
     Dosage: 750 MG/M2, INTRAVENOUS (NOT OTHERWISE SPECIFIED)?
     Route: 042
  6. DOXORUBICIN [Suspect]
     Indication: NON-HODGKIN^S LYMPHOMA
     Dosage: 30 MG/M2, INTRAVENOUS (NOT OTHERWISE SPECIFIED)?
     Route: 042
  7. MERCAPTOPURINE (MERCAPTOPURINE) (MERCAPTOPURINE) [Suspect]
     Indication: PRECURSOR B-LYMPHOBLASTIC LYMPHOMA
     Route: 048
  8. THIOGUANINE [Suspect]
     Indication: NON-HODGKIN^S LYMPHOMA
     Dosage: 35 MG/M2, ORAL
     Route: 042
  9. DAUNORUBICIN [Suspect]
     Indication: NON-HODGKIN^S LYMPHOMA
     Dosage: 50 MG/M2, INTRAVENOUS (NOT OTHERWISE SPECFIED)?
     Route: 042
  10. VINCRISTINE SULFATE [Suspect]
     Indication: NON-HODGKIN^S LYMPHOMA
     Dosage: 1 MG/M2, INTRAVENOUS (NOT OTHERWISE SPECIFIED)?
     Route: 042
  11. G-CSF [Suspect]
     Indication: NON-HODGKIN^S LYMPHOMA

REACTIONS (3)
  - Febrile neutropenia [None]
  - Haematotoxicity [None]
  - Stem cell transplant [None]
